FAERS Safety Report 8768493 (Version 1)
Quarter: 2012Q4

REPORT INFORMATION
  Report Type: 
  Country: DE (occurrence: DE)
  Receive Date: 20120905
  Receipt Date: 20120905
  Transmission Date: 20130627
  Serious: Yes (Hospitalization)
  Sender: FDA-Public Use
  Company Number: DE-GILEAD-2012-0060662

PATIENT
  Sex: Male

DRUGS (5)
  1. RANOLAZINE [Suspect]
     Indication: ANGINA PECTORIS
     Dosage: 375 mg, BID
     Route: 048
     Dates: start: 201207
  2. CONCOR [Concomitant]
  3. PLAVIX [Concomitant]
  4. SIMVASTATIN [Concomitant]
  5. RAMIPRIL [Concomitant]

REACTIONS (1)
  - Atrioventricular block second degree [Unknown]
